FAERS Safety Report 14542924 (Version 2)
Quarter: 2018Q2

REPORT INFORMATION
  Report Type: Spontaneous
  Country: JP (occurrence: JP)
  Receive Date: 20180216
  Receipt Date: 20180424
  Transmission Date: 20180711
  Serious: Yes (Hospitalization)
  Sender: FDA-Public Use
  Company Number: JP-BAYER-2018-020954

PATIENT
  Age: 43 Year
  Sex: Male

DRUGS (2)
  1. GADOVIST [Suspect]
     Active Substance: GADOBUTROL
     Indication: NUCLEAR MAGNETIC RESONANCE IMAGING
     Dosage: 6.5 ML, ONCE
     Route: 042
     Dates: start: 20180125, end: 20180125
  2. GADOVIST [Suspect]
     Active Substance: GADOBUTROL
     Indication: TONGUE NEOPLASM MALIGNANT STAGE UNSPECIFIED

REACTIONS (5)
  - Discomfort [None]
  - Contrast media allergy [Recovered/Resolved]
  - Bradycardia [Recovered/Resolved]
  - Shock [Recovered/Resolved]
  - Blood pressure decreased [Recovered/Resolved]

NARRATIVE: CASE EVENT DATE: 20180125
